FAERS Safety Report 18119229 (Version 4)
Quarter: 2025Q1

REPORT INFORMATION
  Report Type: Report from Study
  Country: CA (occurrence: CA)
  Receive Date: 20200806
  Receipt Date: 20250210
  Transmission Date: 20250409
  Serious: Yes (Other)
  Sender: NOVARTIS
  Company Number: CA-NOVARTISPH-NVSC2020CA086112

PATIENT
  Age: 64 Year
  Sex: Female

DRUGS (7)
  1. COSENTYX [Suspect]
     Active Substance: SECUKINUMAB
     Indication: Psoriasis
     Dosage: 300 MG, QMO
     Route: 058
     Dates: start: 20200309
  2. COSENTYX [Suspect]
     Active Substance: SECUKINUMAB
     Dosage: 300 MG, QMO
     Route: 058
  3. AMOXICILLIN [Suspect]
     Active Substance: AMOXICILLIN
     Indication: Product used for unknown indication
     Route: 065
  4. METHOTREXATE [Concomitant]
     Active Substance: METHOTREXATE
     Indication: Product used for unknown indication
     Route: 065
  5. PREDNISONE [Concomitant]
     Active Substance: PREDNISONE
     Indication: Product used for unknown indication
     Route: 065
  6. BETADERM [Concomitant]
     Active Substance: BETAMETHASONE VALERATE
     Indication: Product used for unknown indication
     Route: 065
  7. CLOBETASOL [Concomitant]
     Active Substance: CLOBETASOL
     Indication: Product used for unknown indication
     Route: 065

REACTIONS (16)
  - Hypersensitivity [Unknown]
  - Pruritus [Unknown]
  - Erythema [Unknown]
  - Dry skin [Unknown]
  - Skin fissures [Unknown]
  - Skin discolouration [Unknown]
  - Rash [Unknown]
  - Oropharyngeal pain [Unknown]
  - Dysphagia [Unknown]
  - Laryngitis [Unknown]
  - Psoriasis [Unknown]
  - Hyperkeratosis [Unknown]
  - Nail discolouration [Unknown]
  - Skin exfoliation [Unknown]
  - Nail discomfort [Unknown]
  - Product supply issue [Unknown]

NARRATIVE: CASE EVENT DATE: 20200301
